FAERS Safety Report 13247576 (Version 2)
Quarter: 2017Q1

REPORT INFORMATION
  Report Type: Report from Study
  Country: AU (occurrence: AU)
  Receive Date: 20170217
  Receipt Date: 20170302
  Transmission Date: 20170428
  Serious: Yes (Hospitalization)
  Sender: FDA-Public Use
  Company Number: AU-ASTRAZENECA-2017SE17291

PATIENT

DRUGS (1)
  1. TAGRISSO [Suspect]
     Active Substance: OSIMERTINIB
     Route: 048

REACTIONS (6)
  - Pleural effusion [Unknown]
  - Nodule [Unknown]
  - Infection [Unknown]
  - Lung infiltration [Unknown]
  - Disease progression [Unknown]
  - Pericardial effusion [Unknown]
